FAERS Safety Report 8349714-1 (Version None)
Quarter: 2012Q2

REPORT INFORMATION
  Report Type: 
  Country: None (occurrence: None)
  Receive Date: 20120510
  Receipt Date: 20120425
  Transmission Date: 20120825
  Serious: Yes (Hospitalization, Other)
  Sender: FDA-Public Use
  Company Number: US-SHIRE-ALL1-2012-02198

PATIENT
  Sex: Female
  Weight: 49.887 kg

DRUGS (4)
  1. VYVANSE [Suspect]
     Indication: ATTENTION DEFICIT/HYPERACTIVITY DISORDER
     Dosage: 30 MG, 1X/DAY:QD
     Route: 048
  2. VYVANSE [Suspect]
     Dosage: UNK UNK, UNKNOWN
     Route: 048
     Dates: start: 20120101, end: 20120401
  3. VYVANSE [Suspect]
     Dosage: 50 MG, 1X/DAY:QD
     Route: 048
     Dates: start: 20120401
  4. VYVANSE [Suspect]
     Dosage: 50 MG, 1X/DAY:QD
     Route: 048
     Dates: start: 20100101, end: 20111201

REACTIONS (14)
  - OVARIAN CYST [None]
  - NAUSEA [None]
  - ABNORMAL LOSS OF WEIGHT [None]
  - AMENORRHOEA [None]
  - CONVULSION [None]
  - DECREASED APPETITE [None]
  - NEPHROLITHIASIS [None]
  - MALAISE [None]
  - INFLUENZA LIKE ILLNESS [None]
  - EXPOSURE TO COMMUNICABLE DISEASE [None]
  - PRODUCT QUALITY ISSUE [None]
  - TRANSIENT ISCHAEMIC ATTACK [None]
  - STILL'S DISEASE ADULT ONSET [None]
  - BLOOD PRESSURE INCREASED [None]
